FAERS Safety Report 12086526 (Version 1)
Quarter: 2016Q1

REPORT INFORMATION
  Report Type: Spontaneous
  Country: US (occurrence: US)
  Receive Date: 20160217
  Receipt Date: 20160217
  Transmission Date: 20160526
  Serious: No
  Sender: FDA-Public Use
  Company Number: US-ALLERGAN-1505556US

PATIENT
  Sex: Female

DRUGS (1)
  1. RESTASIS [Suspect]
     Active Substance: CYCLOSPORINE
     Indication: PRODUCT USED FOR UNKNOWN INDICATION
     Dosage: UNK
     Route: 047
     Dates: start: 201502

REACTIONS (7)
  - Tongue disorder [Not Recovered/Not Resolved]
  - Fungal infection [Unknown]
  - Paraesthesia oral [Not Recovered/Not Resolved]
  - Glossitis [Not Recovered/Not Resolved]
  - Stomatitis [Not Recovered/Not Resolved]
  - Paraesthesia ear [Unknown]
  - Glossodynia [Not Recovered/Not Resolved]
